FAERS Safety Report 9998838 (Version 1)
Quarter: 2014Q1

REPORT INFORMATION
  Report Type: Spontaneous
  Country: US (occurrence: US)
  Receive Date: 20140312
  Receipt Date: 20140312
  Transmission Date: 20141002
  Serious: No
  Sender: FDA-Public Use
  Company Number: US-BIOGENIDEC-2014BI020601

PATIENT
  Age: 55 Year
  Sex: Female

DRUGS (1)
  1. TECFIDERA [Suspect]
     Indication: MULTIPLE SCLEROSIS
     Route: 048
     Dates: start: 201310

REACTIONS (7)
  - Trigeminal neuralgia [Unknown]
  - Speech disorder [Unknown]
  - Dysphagia [Unknown]
  - Facial pain [Unknown]
  - Weight decreased [Unknown]
  - Hypophagia [Unknown]
  - Flushing [Unknown]
